FAERS Safety Report 9717519 (Version 1)
Quarter: 2013Q4

REPORT INFORMATION
  Report Type: Spontaneous
  Country: US (occurrence: US)
  Receive Date: 20131127
  Receipt Date: 20131127
  Transmission Date: 20140711
  Serious: No
  Sender: FDA-Public Use
  Company Number: US-GILEAD-2009-0020539

PATIENT
  Sex: Male
  Weight: 106.59 kg

DRUGS (16)
  1. LETAIRIS [Suspect]
     Indication: PULMONARY ARTERIAL HYPERTENSION
     Route: 048
     Dates: start: 20080411
  2. CELLCEPT [Concomitant]
  3. PROGRAF [Concomitant]
  4. CHILDRENS ASPIRIN [Concomitant]
  5. LISINOPRIL [Concomitant]
  6. PRAVACHOL [Concomitant]
  7. PREDNISONE [Concomitant]
  8. FOSAMAX [Concomitant]
  9. FENTANYL [Concomitant]
  10. ANDROGEL [Concomitant]
  11. CLOTRIMAZOLE [Concomitant]
  12. ZITHROMAX [Concomitant]
  13. BACTRIM DS [Concomitant]
  14. PRILOSEC [Concomitant]
  15. MULTIVITAMIN [Concomitant]
  16. CALCIUM [Concomitant]

REACTIONS (1)
  - Pruritus [Unknown]
